FAERS Safety Report 23390013 (Version 2)
Quarter: 2024Q1

REPORT INFORMATION
  Report Type: Spontaneous
  Country: CH (occurrence: CH)
  Receive Date: 20240111
  Receipt Date: 20240304
  Transmission Date: 20240409
  Serious: Yes (Other)
  Sender: FDA-Public Use
  Company Number: CH-ABBVIE-5578981

PATIENT
  Age: 74 Year
  Sex: Male
  Weight: 75 kg

DRUGS (6)
  1. RINVOQ [Suspect]
     Active Substance: UPADACITINIB
     Indication: Dermatitis atopic
     Route: 048
     Dates: start: 20230501
  2. TORSEMIDE [Concomitant]
     Active Substance: TORSEMIDE
     Indication: Product used for unknown indication
     Dosage: FREQUENCY TEXT: 0.5 FOR BREAKFAST
  3. Vascord [Concomitant]
     Indication: Hypertension
     Dosage: 20/5 MG?FREQUENCY TEXT: 1 FOR BREAKFAST
     Dates: start: 2014
  4. ELIQUIS [Concomitant]
     Active Substance: APIXABAN
     Indication: Product used for unknown indication
     Dosage: FREQUENCY TEXT: 1 FOR BREAKFAST  AND 1 DINNER
  5. DAFALGAN [Concomitant]
     Active Substance: ACETAMINOPHEN
     Indication: Product used for unknown indication
     Dosage: FREQUENCY TEXT: IF NEEDED
  6. BISOPROLOL [Concomitant]
     Active Substance: BISOPROLOL\BISOPROLOL FUMARATE
     Indication: Product used for unknown indication
     Dosage: FREQUENCY TEXT: 0.5 FOR BREAKFAST

REACTIONS (6)
  - Loss of consciousness [Unknown]
  - Acute cardiac event [Unknown]
  - Pulmonary oedema [Unknown]
  - Left ventricular failure [Unknown]
  - Syncope [Unknown]
  - Pulmonary congestion [Unknown]

NARRATIVE: CASE EVENT DATE: 20231201
